FAERS Safety Report 6607718-0 (Version None)
Quarter: 2010Q1

REPORT INFORMATION
  Report Type: 
  Country: None (occurrence: None)
  Receive Date: 20100223
  Receipt Date: 20100216
  Transmission Date: 20100710
  Serious: Yes (Hospitalization)
  Sender: FDA-Public Use
  Company Number: A-US2009-25110

PATIENT
  Age: 85 Year
  Sex: Female

DRUGS (3)
  1. TRACLEER [Suspect]
     Indication: PULMONARY ARTERIAL HYPERTENSION
     Dosage: ORAL
     Route: 048
     Dates: start: 20090302
  2. CALCIUM CHANNEL BLOCKERS [Concomitant]
  3. MAGNESIA (MAGNESIUM OXIDE) [Concomitant]

REACTIONS (9)
  - CEREBRAL HAEMORRHAGE [None]
  - CHEST DISCOMFORT [None]
  - CONSTIPATION [None]
  - DIARRHOEA [None]
  - FALL [None]
  - HEAD INJURY [None]
  - LOSS OF CONSCIOUSNESS [None]
  - SUBARACHNOID HAEMORRHAGE [None]
  - THROMBOSIS [None]
